FAERS Safety Report 6324138-7 (Version None)
Quarter: 2009Q3

REPORT INFORMATION
  Report Type: 
  Country: None (occurrence: None)
  Receive Date: 20090824
  Receipt Date: 20090421
  Transmission Date: 20100115
  Serious: No
  Sender: FDA-Public Use
  Company Number: US-ABBOTT-09P-163-0569665-00

PATIENT
  Sex: Male
  Weight: 97.61 kg

DRUGS (5)
  1. NIASPAN [Suspect]
     Indication: BLOOD CHOLESTEROL INCREASED
     Dates: start: 20090401
  2. DARVOCET [Concomitant]
     Indication: DRUG USE FOR UNKNOWN INDICATION
  3. MVT [Concomitant]
     Indication: DRUG USE FOR UNKNOWN INDICATION
  4. VITAMIN B COMPLEX CAP [Concomitant]
     Indication: DRUG USE FOR UNKNOWN INDICATION
     Dosage: PHYSICIAN IS AWARE
  5. NAPROXEN [Concomitant]
     Indication: DRUG USE FOR UNKNOWN INDICATION

REACTIONS (3)
  - ABNORMAL DREAMS [None]
  - INJURY [None]
  - ROAD TRAFFIC ACCIDENT [None]
